FAERS Safety Report 8483521 (Version 4)
Quarter: 2013Q1

REPORT INFORMATION
  Report Type: Report from Study
  Country: US (occurrence: US)
  Receive Date: 20120329
  Receipt Date: 20130327
  Transmission Date: 20140127
  Serious: Yes (Hospitalization)
  Sender: FDA-Public Use
  Company Number: US-GLAXOSMITHKLINE-A0971391A

PATIENT
  Age: 59 Year
  Sex: Male

DRUGS (11)
  1. CARVEDILOL [Suspect]
     Indication: PRODUCT USED FOR UNKNOWN INDICATION
  2. FUROSEMIDE [Suspect]
     Indication: PRODUCT USED FOR UNKNOWN INDICATION
  3. TORASEMIDE [Suspect]
     Indication: PRODUCT USED FOR UNKNOWN INDICATION
  4. SPIRONOLACTONE [Suspect]
     Indication: PRODUCT USED FOR UNKNOWN INDICATION
  5. BLINDED TRIAL MEDICATION [Concomitant]
     Indication: TYPE 2 DIABETES MELLITUS
     Dates: start: 20110325
  6. ASPIRIN [Concomitant]
  7. EZETIMIBE [Concomitant]
  8. STATINS [Concomitant]
  9. FENOFIBRATE [Concomitant]
  10. ANTICOAGULANT [Concomitant]
  11. INSULIN [Concomitant]
     Dates: start: 20110903

REACTIONS (4)
  - Renal failure acute [Recovered/Resolved]
  - Hypotension [Recovered/Resolved]
  - Renal failure acute [Recovered/Resolved]
  - Irritable bowel syndrome [Recovered/Resolved]
